FAERS Safety Report 5769216-6 (Version None)
Quarter: 2008Q2

REPORT INFORMATION
  Report Type: 
  Country: None (occurrence: None)
  Receive Date: 20080612
  Receipt Date: 20080509
  Transmission Date: 20081010
  Serious: No
  Sender: FDA-Public Use
  Company Number: US-ABBOTT-08P-163-0444123-00

PATIENT
  Sex: Female
  Weight: 76.272 kg

DRUGS (10)
  1. HUMIRA [Suspect]
     Indication: RHEUMATOID ARTHRITIS
     Route: 058
     Dates: start: 20040101, end: 20080302
  2. HUMIRA [Suspect]
     Dosage: EVERY 10 DAYS
     Dates: start: 20080509
  3. METHOTREXATE [Concomitant]
     Indication: RHEUMATOID ARTHRITIS
     Route: 048
     Dates: start: 19910101
  4. FOLIC ACID [Concomitant]
     Indication: VITAMIN SUPPLEMENTATION
     Route: 048
     Dates: start: 19960101
  5. LEVOTHYROXINE SODIUM [Concomitant]
     Indication: HYPOTHYROIDISM
     Route: 048
     Dates: start: 19650101
  6. TOPIRAMATE [Concomitant]
     Indication: DEPRESSION
     Route: 048
  7. BUPROPION HCL [Concomitant]
     Indication: DEPRESSION
     Route: 048
  8. VENLAFAXINE HCL [Concomitant]
     Indication: DEPRESSION
     Route: 048
  9. METHYLPHENIDATE HCL [Concomitant]
     Indication: DEPRESSION
     Route: 048
  10. HYDROCODONE [Concomitant]
     Indication: PAIN
     Dosage: NOT REPORTED
     Route: 048

REACTIONS (5)
  - INCISION SITE ERYTHEMA [None]
  - MELANOCYTIC NAEVUS [None]
  - MOLE EXCISION [None]
  - OVERDOSE [None]
  - PRECANCEROUS SKIN LESION [None]
